FAERS Safety Report 7556533-2 (Version None)
Quarter: 2011Q2

REPORT INFORMATION
  Report Type: 
  Country: None (occurrence: None)
  Receive Date: 20110620
  Receipt Date: 20110606
  Transmission Date: 20111010
  Serious: Yes (Hospitalization, Disabling)
  Sender: FDA-Public Use
  Company Number: FR-RANBAXY-2010RR-40984

PATIENT
  Sex: Male

DRUGS (2)
  1. OFLOXACIN [Suspect]
     Indication: CYSTITIS
     Dosage: 200 MG, BID
     Route: 065
     Dates: start: 20100904, end: 20100919
  2. OFLOXACIN [Suspect]
     Dosage: UNK
     Dates: start: 20101105, end: 20101116

REACTIONS (4)
  - DYSSTASIA [None]
  - TENDON DISORDER [None]
  - GAIT DISTURBANCE [None]
  - MUSCLE ATROPHY [None]
